FAERS Safety Report 25005304 (Version 1)
Quarter: 2025Q1

REPORT INFORMATION
  Report Type: Spontaneous
  Country: ZA (occurrence: ZA)
  Receive Date: 20250224
  Receipt Date: 20250224
  Transmission Date: 20250409
  Serious: Yes (Other)
  Sender: PFIZER
  Company Number: ZA-PFIZER INC-PV202400103376

PATIENT
  Age: 52 Year
  Sex: Male
  Weight: 82 kg

DRUGS (2)
  1. METHOTREXATE SODIUM [Suspect]
     Active Substance: METHOTREXATE SODIUM
     Dosage: 25 MG, WEEKLY
     Dates: start: 202203
  2. SULFASALAZINE [Suspect]
     Active Substance: SULFASALAZINE
     Dates: start: 202203

REACTIONS (7)
  - Haemoglobin decreased [Recovered/Resolved]
  - Condition aggravated [Unknown]
  - Treatment failure [Unknown]
  - White blood cell count increased [Recovered/Resolved]
  - Tuberculin test positive [Unknown]
  - Alanine aminotransferase increased [Recovered/Resolved]
  - Aspartate aminotransferase increased [Recovering/Resolving]

NARRATIVE: CASE EVENT DATE: 20220722
